FAERS Safety Report 9019559 (Version 2)
Quarter: 2013Q1

REPORT INFORMATION
  Report Type: Report from Study
  Country: US (occurrence: US)
  Receive Date: 20130118
  Receipt Date: 20130129
  Transmission Date: 20140127
  Serious: Yes (Hospitalization, Other)
  Sender: FDA-Public Use
  Company Number: US-TEVA-380734USA

PATIENT
  Age: 77 None
  Sex: Female

DRUGS (1)
  1. CLOZAPINE [Suspect]
     Indication: SCHIZOAFFECTIVE DISORDER BIPOLAR TYPE
     Route: 048
     Dates: end: 20130118

REACTIONS (6)
  - Abdominal abscess [Unknown]
  - Gait disturbance [Unknown]
  - Dysarthria [Unknown]
  - Urinary tract infection [Unknown]
  - Breast cancer metastatic [Unknown]
  - General physical health deterioration [Unknown]
